FAERS Safety Report 19483250 (Version 8)
Quarter: 2022Q3

REPORT INFORMATION
  Report Type: Spontaneous
  Country: US (occurrence: US)
  Receive Date: 20210701
  Receipt Date: 20220901
  Transmission Date: 20221027
  Serious: Yes (Hospitalization, Other)
  Sender: FDA-Public Use
  Company Number: US-CATALYST PHARMACEUTICALS, INC-2021CAT00286

PATIENT
  Sex: Female
  Weight: 55.592 kg

DRUGS (23)
  1. FIRDAPSE [Suspect]
     Active Substance: AMIFAMPRIDINE PHOSPHATE
     Indication: Small cell lung cancer limited stage
     Dosage: 20 MG, 4X/DAY
     Route: 048
     Dates: start: 20210503
  2. FIRDAPSE [Suspect]
     Active Substance: AMIFAMPRIDINE PHOSPHATE
     Indication: Myasthenic syndrome
     Dosage: 20 MG, 4X/DAY
     Route: 048
     Dates: start: 20210503
  3. FIRDAPSE [Suspect]
     Active Substance: AMIFAMPRIDINE PHOSPHATE
     Dosage: 20 MG 4X/DAY AND 10 MG AT 10 AM.
     Route: 048
  4. CARBOPLATIN [Suspect]
     Active Substance: CARBOPLATIN
     Indication: Small cell lung cancer limited stage
     Dosage: 150 MG, 1X/WEEK
     Route: 042
     Dates: start: 2021
  5. ETOPOSIDE [Suspect]
     Active Substance: ETOPOSIDE
     Indication: Small cell lung cancer limited stage
     Dosage: 100 MG, 3X/WEEK
     Route: 042
     Dates: start: 2021
  6. MESTINON [Concomitant]
     Active Substance: PYRIDOSTIGMINE BROMIDE
     Dosage: 60 MG, 3X/DAY
  7. MESTINON [Concomitant]
     Active Substance: PYRIDOSTIGMINE BROMIDE
     Dosage: 120 MG, 1X/DAY
  8. WELLBUTRIN XL [Concomitant]
     Active Substance: BUPROPION HYDROCHLORIDE
     Dosage: 450 MG, 1X/DAY
  9. PREDNISONE [Concomitant]
     Active Substance: PREDNISONE
     Dosage: 3 MG, 1X/DAY
  10. PREDNISONE [Concomitant]
     Active Substance: PREDNISONE
     Dosage: 30 MG, 1X/DAY
     Dates: start: 2021
  11. PREDNISONE [Concomitant]
     Active Substance: PREDNISONE
     Dosage: 3 MG, 1X/DAY
  12. ENALAPRIL [Concomitant]
     Active Substance: ENALAPRIL
     Dosage: 10 MG, 1X/DAY
  13. AMLODIPINE [Concomitant]
     Active Substance: AMLODIPINE BESYLATE
     Dosage: 5 MG, 1X/DAY
  14. PROTONIX [Concomitant]
     Active Substance: PANTOPRAZOLE SODIUM
     Dosage: 40 MG, 1X/DAY
  15. CARAFATE [Concomitant]
     Active Substance: SUCRALFATE
     Dosage: 1 TABLET, EVERY 6 HOURS
  16. CARAFATE [Concomitant]
     Active Substance: SUCRALFATE
     Dosage: 1 G, EVERY 6 HOURS
  17. ZOFRAN [Concomitant]
     Active Substance: ONDANSETRON HYDROCHLORIDE
     Dosage: 4 MG, AS NEEDED
  18. HYDROMORPHONE [Concomitant]
     Active Substance: HYDROMORPHONE
     Dosage: 4 MG, AS NEEDED
  19. OXYCODONE [Concomitant]
     Active Substance: OXYCODONE
     Dosage: 10 MG, AS NEEDED
  20. CEFUROXIME [Concomitant]
     Active Substance: CEFUROXIME
     Dosage: 500 MG, 3X/DAY
  21. FLAGYL [Concomitant]
     Active Substance: METRONIDAZOLE\METRONIDAZOLE HYDROCHLORIDE
     Dosage: 500 MG, 2X/DAY
  22. RAMIPRIL [Concomitant]
     Active Substance: RAMIPRIL
     Dosage: 5 MG, 1X/DAY
  23. MEPRON [Concomitant]
     Active Substance: ATOVAQUONE
     Dosage: 750 MG, 1X/DAY

REACTIONS (29)
  - Diverticulitis [Recovering/Resolving]
  - Neutrophil count decreased [Recovered/Resolved]
  - White blood cell count increased [Recovering/Resolving]
  - Deep vein thrombosis [Recovered/Resolved]
  - Gastrointestinal stoma complication [Recovering/Resolving]
  - Anaemia [Recovering/Resolving]
  - Febrile neutropenia [Recovering/Resolving]
  - Sepsis [Recovered/Resolved]
  - Abdominal abscess [Recovered/Resolved]
  - Pneumonia [Recovered/Resolved]
  - Thrombocytopenia [Unknown]
  - Hypokalaemia [Recovered/Resolved]
  - Melaena [Unknown]
  - Bacterial infection [Recovering/Resolving]
  - Peripheral swelling [Recovering/Resolving]
  - Prescribed overdose [Not Recovered/Not Resolved]
  - Procedural pain [Recovering/Resolving]
  - Stoma site discharge [Unknown]
  - Leukocytosis [Unknown]
  - Condition aggravated [Unknown]
  - Fatigue [Unknown]
  - Diplopia [Unknown]
  - Product dose omission issue [Recovered/Resolved]
  - Constipation [Unknown]
  - Pyrexia [Unknown]
  - Diarrhoea [Recovering/Resolving]
  - Asthenia [Unknown]
  - Dyspnoea [Unknown]
  - Abdominal pain upper [Unknown]

NARRATIVE: CASE EVENT DATE: 20210101
